FAERS Safety Report 7001772-2 (Version None)
Quarter: 2010Q3

REPORT INFORMATION
  Report Type: 
  Country: None (occurrence: None)
  Receive Date: 20100920
  Receipt Date: 20071203
  Transmission Date: 20110219
  Serious: Yes (Hospitalization)
  Sender: FDA-Public Use
  Company Number: US-ASTRAZENECA-2007UW13589

PATIENT
  Age: 5124 Day
  Sex: Female
  Weight: 112.9 kg

DRUGS (20)
  1. SEROQUEL [Suspect]
     Indication: BIPOLAR DISORDER
     Route: 048
     Dates: start: 20050101, end: 20050101
  2. SEROQUEL [Suspect]
     Indication: DEPRESSION
     Route: 048
     Dates: start: 20050101, end: 20050101
  3. SEROQUEL [Suspect]
     Indication: ANXIETY
     Route: 048
     Dates: start: 20050101, end: 20050101
  4. SEROQUEL [Suspect]
     Route: 048
     Dates: start: 20050103
  5. SEROQUEL [Suspect]
     Route: 048
     Dates: start: 20050103
  6. SEROQUEL [Suspect]
     Route: 048
     Dates: start: 20050103
  7. ZYPREXA [Concomitant]
  8. ZYPREXA [Concomitant]
     Dosage: 5MG TO 7.5MG, DAILY
     Dates: start: 20050128, end: 20050315
  9. PROZAC [Concomitant]
  10. ORTH-TRICYCLEN 28 [Concomitant]
     Indication: MENSTRUATION IRREGULAR
  11. ANTIBIOTIC [Concomitant]
     Indication: INFECTION
  12. TENORMIN [Concomitant]
  13. TENORMIN [Concomitant]
     Dates: start: 20050129
  14. TRICOR [Concomitant]
     Route: 048
     Dates: start: 20050604
  15. METFORMIN [Concomitant]
     Dates: start: 20050406
  16. CRESTOR [Concomitant]
     Route: 048
     Dates: start: 20051221
  17. NORVASC [Concomitant]
     Dosage: 5MG TO 10MG, DAILY
     Route: 048
     Dates: start: 20051116
  18. GEMFIBROZIL [Concomitant]
     Route: 048
     Dates: start: 20050629
  19. ABILIFY [Concomitant]
     Route: 048
     Dates: start: 20050311
  20. FLUOXETINE [Concomitant]
     Dates: start: 20050311

REACTIONS (5)
  - ABDOMINAL PAIN [None]
  - DIABETES MELLITUS INADEQUATE CONTROL [None]
  - TYPE 2 DIABETES MELLITUS [None]
  - UPPER RESPIRATORY TRACT INFECTION [None]
  - URINARY TRACT INFECTION [None]
